FAERS Safety Report 18848805 (Version 1)
Quarter: 2021Q1

REPORT INFORMATION
  Report Type: Spontaneous
  Country: SE (occurrence: SE)
  Receive Date: 20210205
  Receipt Date: 20210205
  Transmission Date: 20210419
  Serious: Yes (Hospitalization, Other)
  Sender: FDA-Public Use
  Company Number: GXKR2008SE00478

PATIENT
  Age: 35 Year
  Sex: Female

DRUGS (3)
  1. PREDNISOLONE. [Concomitant]
     Active Substance: PREDNISOLONE
     Indication: PRODUCT USED FOR UNKNOWN INDICATION
     Dosage: 5 MG, QD
     Route: 065
  2. CICLOSPORIN [Concomitant]
     Active Substance: CYCLOSPORINE
     Indication: PRODUCT USED FOR UNKNOWN INDICATION
     Dosage: 50 MG, QD
     Route: 065
  3. VALACICLOVIR [Suspect]
     Active Substance: VALACYCLOVIR HYDROCHLORIDE
     Indication: HERPES ZOSTER
     Dosage: 1 G, DAILY
     Route: 065

REACTIONS (10)
  - Restlessness [Recovered/Resolved]
  - Hallucinations, mixed [Recovered/Resolved]
  - Cotard^s syndrome [Recovered/Resolved]
  - Anxiety [Recovered/Resolved]
  - Feeling abnormal [Recovered/Resolved]
  - Ataxia [Recovered/Resolved]
  - Fatigue [Recovered/Resolved]
  - Crying [Recovered/Resolved]
  - Somatic delusion [Recovered/Resolved]
  - Walking disability [Recovered/Resolved]
